FAERS Safety Report 11595891 (Version 1)
Quarter: 2015Q4

REPORT INFORMATION
  Report Type: Spontaneous
  Country: TN (occurrence: None)
  Receive Date: 20151002
  Receipt Date: 20151002
  Transmission Date: 20160304
  Serious: Yes (Hospitalization)
  Sender: FDA-Public Use
  Company Number: 2015PL000206

PATIENT
  Age: 67 Year
  Sex: Male

DRUGS (3)
  1. CANDESARTAN (CANDESARTAN CILEXETIL) [Concomitant]
  2. ALLOPURINOL (ALLOPURINOL) TABLET [Suspect]
     Active Substance: ALLOPURINOL
     Indication: HYPERURICAEMIA
  3. ASPIRIN (ACETYLSALICYLIC ACID) [Concomitant]
     Active Substance: ASPIRIN

REACTIONS (3)
  - Drug reaction with eosinophilia and systemic symptoms [None]
  - Hepatic enzyme abnormal [None]
  - Acute generalised exanthematous pustulosis [None]
